FAERS Safety Report 4878788-5 (Version None)
Quarter: 2005Q4

REPORT INFORMATION
  Report Type: 
  Country: None (occurrence: None)
  Receive Date: 20051209
  Receipt Date: 20050524
  Transmission Date: 20060501
  Serious: Yes (Death)
  Sender: FDA-Public Use
  Company Number: USA-2005-0020362

PATIENT
  Age: 19 Year
  Sex: Male

DRUGS (6)
  1. OXYCONTIN [Suspect]
  2. XANAX [Suspect]
  3. VALIUM [Suspect]
  4. COCAINE (COCAINE) [Suspect]
  5. MARIJUANA (CANNABIS) [Suspect]
  6. ALCOHOL (ETHANOL) [Suspect]

REACTIONS (1)
  - POLYSUBSTANCE ABUSE [None]
